FAERS Safety Report 8181850-5 (Version None)
Quarter: 2012Q1

REPORT INFORMATION
  Report Type: 
  Country: None (occurrence: None)
  Receive Date: 20120302
  Receipt Date: 20120227
  Transmission Date: 20120608
  Serious: Yes (Other)
  Sender: FDA-Public Use
  Company Number: US-AMGEN-USASP2011016047

PATIENT
  Age: 72 Year
  Sex: Female
  Weight: 76.19 kg

DRUGS (5)
  1. PROLIA [Suspect]
     Indication: OSTEOPOROSIS POSTMENOPAUSAL
     Dosage: 60 MG, Q6MO
     Route: 058
     Dates: start: 20101012
  2. GABAPENTIN [Concomitant]
     Dosage: UNK
  3. CALCIUM [Concomitant]
     Dosage: 1 MG, UNK
  4. VICODIN [Concomitant]
     Dosage: UNK
  5. VITAMIN D [Concomitant]
     Dosage: 1 IU, UNK

REACTIONS (4)
  - JOINT CREPITATION [None]
  - LIGAMENT DISORDER [None]
  - MUSCLE SPASMS [None]
  - PAIN IN EXTREMITY [None]
